FAERS Safety Report 9460669 (Version 1)
Quarter: 2013Q3

REPORT INFORMATION
  Report Type: Spontaneous
  Country: JP (occurrence: None)
  Receive Date: 20130813
  Receipt Date: 20130813
  Transmission Date: 20140515
  Serious: Yes (Hospitalization)
  Sender: FDA-Public Use
  Company Number: ABR_01067_2013

PATIENT
  Age: 54 Year
  Sex: Male

DRUGS (1)
  1. LAMOTRIGINE (LAMOTRIGINE) [Suspect]
     Dosage: 150. MG DAILY; INCREASED BY 50MG WEEKLY] ) , ( [200MG DAILY] (THERAPY UNKNOWN UNTIL NOT CONTINUING THERAPY UNKNOWN UNTIL NOT CONTINUING)

REACTIONS (1)
  - Neuroleptic malignant syndrome [None]
